FAERS Safety Report 14934401 (Version 1)
Quarter: 2018Q2

REPORT INFORMATION
  Report Type: Spontaneous
  Country: US (occurrence: US)
  Receive Date: 20180524
  Receipt Date: 20180524
  Transmission Date: 20180711
  Serious: No
  Sender: FDA-Public Use
  Company Number: US-PFIZER INC-2018211204

PATIENT
  Age: 35 Year
  Sex: Female

DRUGS (1)
  1. METHOTREXATE SODIUM. [Suspect]
     Active Substance: METHOTREXATE SODIUM
     Dosage: UNK

REACTIONS (18)
  - Fatigue [Unknown]
  - Joint swelling [Not Recovered/Not Resolved]
  - Vomiting in pregnancy [Unknown]
  - Condition aggravated [Not Recovered/Not Resolved]
  - Abdominal pain upper [Unknown]
  - Condition aggravated [Unknown]
  - Oral fungal infection [Unknown]
  - Arthralgia [Not Recovered/Not Resolved]
  - Pain [Not Recovered/Not Resolved]
  - Drug intolerance [Unknown]
  - Cold sweat [Unknown]
  - Pain in extremity [Unknown]
  - C-reactive protein increased [Not Recovered/Not Resolved]
  - Vomiting [Unknown]
  - Nausea [Unknown]
  - White blood cell count abnormal [Unknown]
  - Blood potassium decreased [Unknown]
  - Red blood cell sedimentation rate increased [Not Recovered/Not Resolved]
